FAERS Safety Report 9438504 (Version 1)
Quarter: 2013Q3

REPORT INFORMATION
  Report Type: Spontaneous
  Country: US (occurrence: None)
  Receive Date: 20130802
  Receipt Date: 20130802
  Transmission Date: 20140515
  Serious: Yes (Disabling)
  Sender: FDA-Public Use
  Company Number: None

PATIENT
  Age: 55 Year
  Sex: Female

DRUGS (1)
  1. PROLIA [Suspect]
     Indication: BONE DISORDER
     Dosage: 60.0   ONCE
     Dates: start: 20130306

REACTIONS (10)
  - Dizziness [None]
  - Vision blurred [None]
  - Hypoaesthesia [None]
  - Insomnia [None]
  - Gait disturbance [None]
  - Discomfort [None]
  - Palpitations [None]
  - Alopecia [None]
  - Anxiety [None]
  - Alopecia [None]
